FAERS Safety Report 20684454 (Version 17)
Quarter: 2024Q2

REPORT INFORMATION
  Report Type: Spontaneous
  Country: US (occurrence: US)
  Receive Date: 20220407
  Receipt Date: 20240606
  Transmission Date: 20240716
  Serious: No
  Sender: FDA-Public Use
  Company Number: US-PFIZER INC-2020341889

PATIENT
  Age: 72 Year
  Sex: Female

DRUGS (3)
  1. IBRANCE [Suspect]
     Active Substance: PALBOCICLIB
     Indication: Breast cancer metastatic
     Dosage: 75 MG, CYCLIC (TAKE ONE TABLET EVERY OTHER DAY 21 DAYS ON 7 DAYS OFF)
     Route: 048
  2. IBRANCE [Suspect]
     Active Substance: PALBOCICLIB
     Dosage: 75 MG, ALTERNATE DAY
  3. IBRANCE [Suspect]
     Active Substance: PALBOCICLIB
     Dosage: 75 MG, CYCLIC (TAKE 1 TABLET EVERY OTHER DAY 21 DAYS ON 7 DAYS OFF)
     Route: 048

REACTIONS (5)
  - Emotional disorder [Unknown]
  - Nervousness [Unknown]
  - Decreased immune responsiveness [Unknown]
  - Paranasal sinus hypersecretion [Unknown]
  - Off label use [Unknown]
